FAERS Safety Report 11587670 (Version 2)
Quarter: 2015Q4

REPORT INFORMATION
  Report Type: Spontaneous
  Country: EG (occurrence: EG)
  Receive Date: 20151001
  Receipt Date: 20151118
  Transmission Date: 20160304
  Serious: Yes (Other)
  Sender: FDA-Public Use
  Company Number: EG-PFIZER INC.-2015329127

PATIENT

DRUGS (2)
  1. LYRICA [Suspect]
     Active Substance: PREGABALIN
     Indication: BACK PAIN
     Dosage: 150 MG, 2X/DAY
     Route: 048
  2. MYOFEN /00252601/ [Concomitant]
     Indication: MUSCLE RELAXANT THERAPY
     Dosage: UNK, 2X/DAY

REACTIONS (6)
  - Cardiac arrest [Recovered/Resolved]
  - Dizziness [Recovered/Resolved]
  - Somnolence [Recovered/Resolved]
  - Arrhythmia [Recovered/Resolved]
  - Cerebrovascular accident [Recovered/Resolved]
  - Chest pain [Recovered/Resolved]
